FAERS Safety Report 7226381-1 (Version None)
Quarter: 2011Q1

REPORT INFORMATION
  Report Type: 
  Country: None (occurrence: None)
  Receive Date: 20110114
  Receipt Date: 20110111
  Transmission Date: 20110831
  Serious: Yes (Hospitalization, Other)
  Sender: FDA-Public Use
  Company Number: PHHY2010DE87153

PATIENT
  Sex: Female
  Weight: 48 kg

DRUGS (3)
  1. DIURETICS [Concomitant]
  2. EXFORGE [Suspect]
     Indication: HYPERTENSION
     Dosage: 160 MG VALS AND 10 MG AMLO
     Route: 048
     Dates: start: 20081021, end: 20091210
  3. ALISKIREN [Suspect]
     Indication: HYPERTENSION
     Dosage: 300/ 25 MG
     Route: 048
     Dates: start: 20081112, end: 20100706

REACTIONS (3)
  - ALCOHOL ABUSE [None]
  - HYPOTENSION [None]
  - BLOOD PRESSURE INCREASED [None]
